FAERS Safety Report 15402566 (Version 1)
Quarter: 2018Q3

REPORT INFORMATION
  Report Type: Spontaneous
  Country: DE (occurrence: DE)
  Receive Date: 20180919
  Receipt Date: 20180919
  Transmission Date: 20181010
  Serious: Yes (Hospitalization, Other)
  Sender: FDA-Public Use
  Company Number: DE-SEPTODONT-201804807

PATIENT
  Sex: Male

DRUGS (2)
  1. ARTICAINE HYDROCHLORIDE AND ADRENALINE [Suspect]
     Active Substance: ARTICAINE\EPINEPHRINE
     Indication: DENTAL LOCAL ANAESTHESIA
     Dosage: ON TOOTH 15
     Route: 004
  2. ARTICAINE HYDROCHLORIDE AND ADRENALINE [Suspect]
     Active Substance: ARTICAINE\EPINEPHRINE
     Indication: DENTAL LOCAL ANAESTHESIA
     Dosage: ON TEETH 36 AND 46
     Route: 004

REACTIONS (4)
  - Hypertension [Unknown]
  - Pain in jaw [Unknown]
  - Hyperventilation [Unknown]
  - Procedural pain [Unknown]
